FAERS Safety Report 8482222 (Version 2)
Quarter: 2016Q1

REPORT INFORMATION
  Report Type: Spontaneous
  Country: US (occurrence: US)
  Receive Date: 20120329
  Receipt Date: 20160216
  Transmission Date: 20160526
  Serious: Yes (Death, Hospitalization, Disabling)
  Sender: FDA-Public Use
  Company Number: US-ROCHE-1052165

PATIENT
  Age: 50 Year
  Sex: Female
  Weight: 78.81 kg

DRUGS (6)
  1. SPIRONOLACTONE. [Concomitant]
     Active Substance: SPIRONOLACTONE
  2. ACYCLOVIR. [Concomitant]
     Active Substance: ACYCLOVIR
  3. LASIX [Concomitant]
     Active Substance: FUROSEMIDE
  4. ZELBORAF [Suspect]
     Active Substance: VEMURAFENIB
     Indication: MALIGNANT MELANOMA
     Route: 048
     Dates: start: 20120214, end: 20120730
  5. NEXIUM [Concomitant]
     Active Substance: ESOMEPRAZOLE MAGNESIUM
  6. PAXIL (UNITED STATES) [Concomitant]

REACTIONS (7)
  - Myocardial infarction [Unknown]
  - Pneumonitis [Recovered/Resolved]
  - Pulmonary embolism [Unknown]
  - Cardiac failure congestive [Recovered/Resolved]
  - Death [Fatal]
  - Pulmonary oedema [Unknown]
  - Fluid retention [Recovered/Resolved]

NARRATIVE: CASE EVENT DATE: 201203
